FAERS Safety Report 17941553 (Version 1)
Quarter: 2020Q2

REPORT INFORMATION
  Report Type: Spontaneous
  Country: US (occurrence: US)
  Receive Date: 20200624
  Receipt Date: 20200624
  Transmission Date: 20200714
  Serious: Yes (Hospitalization)
  Sender: FDA-Public Use
  Company Number: None

PATIENT
  Age: 4 Year
  Sex: Male
  Weight: 20.61 kg

DRUGS (2)
  1. RENUHERBS DETOX TEA [Suspect]
     Active Substance: DIETARY SUPPLEMENT
  2. RENUHERBS PARASITE FORMULA [Suspect]
     Active Substance: HERBALS

REACTIONS (4)
  - Toxicity to various agents [None]
  - Product lot number issue [None]
  - Abdominal pain [None]
  - Product expiration date issue [None]

NARRATIVE: CASE EVENT DATE: 20200623
